FAERS Safety Report 10623290 (Version 1)
Quarter: 2014Q4

REPORT INFORMATION
  Report Type: Spontaneous
  Country: CA (occurrence: CA)
  Receive Date: 20141203
  Receipt Date: 20141203
  Transmission Date: 20150529
  Serious: Yes (Other)
  Sender: FDA-Public Use
  Company Number: CA-TEVA-525499USA

PATIENT
  Sex: Female

DRUGS (1)
  1. SEASONALE [Suspect]
     Active Substance: ETHINYL ESTRADIOL\LEVONORGESTREL
     Indication: POST COITAL CONTRACEPTION
     Dates: start: 2011

REACTIONS (4)
  - Hot flush [Unknown]
  - Metrorrhagia [Unknown]
  - Cholecystectomy [Unknown]
  - Menstruation delayed [Unknown]
